FAERS Safety Report 4421893-8 (Version None)
Quarter: 2004Q3

REPORT INFORMATION
  Report Type: 
  Country: None (occurrence: None)
  Receive Date: 20040804
  Receipt Date: 20040722
  Transmission Date: 20050211
  Serious: Yes (Other)
  Sender: FDA-Public Use
  Company Number: 2004051026

PATIENT
  Age: 23 Month
  Sex: Male
  Weight: 16.3295 kg

DRUGS (1)
  1. ZYRTEC [Suspect]
     Indication: HYPERSENSITIVITY
     Dosage: 1.25 TSP (1.25 TSP, 1 IN 1 D), ORAL
     Route: 048
     Dates: start: 20040621

REACTIONS (8)
  - BLOOD PRESSURE DECREASED [None]
  - COMA [None]
  - EAR INFECTION [None]
  - HEART RATE DECREASED [None]
  - IRRITABILITY [None]
  - LETHARGY [None]
  - MEDICATION ERROR [None]
  - RESPIRATORY RATE DECREASED [None]
